FAERS Safety Report 24730332 (Version 1)
Quarter: 2024Q4

REPORT INFORMATION
  Report Type: Spontaneous
  Country: GB (occurrence: GB)
  Receive Date: 20241213
  Receipt Date: 20241213
  Transmission Date: 20250115
  Serious: Yes (Other)
  Sender: HETERO
  Company Number: None

PATIENT
  Sex: Male

DRUGS (4)
  1. DULOXETINE [Suspect]
     Active Substance: DULOXETINE
     Indication: Hemicrania continua
     Dosage: UNK
     Route: 065
  2. OMEPRAZOLE [Concomitant]
     Active Substance: OMEPRAZOLE
     Indication: Hernia
     Dosage: UNK
     Route: 065
  3. ATORVASTATIN [Concomitant]
     Active Substance: ATORVASTATIN
     Indication: Hypercholesterolaemia
     Dosage: UNK
     Route: 065
  4. TAMSULOSIN [Concomitant]
     Active Substance: TAMSULOSIN
     Indication: Prostatomegaly
     Dosage: UNK
     Route: 065

REACTIONS (7)
  - Blood pressure fluctuation [Unknown]
  - Blood pressure increased [Recovered/Resolved]
  - Restlessness [Unknown]
  - Lacrimation increased [Unknown]
  - Fatigue [Unknown]
  - Disturbance in attention [Unknown]
  - Drug ineffective for unapproved indication [Unknown]
